FAERS Safety Report 7656018-9 (Version None)
Quarter: 2011Q3

REPORT INFORMATION
  Report Type: 
  Country: None (occurrence: None)
  Receive Date: 20110804
  Receipt Date: 20110727
  Transmission Date: 20111222
  Serious: Yes (Death, Hospitalization)
  Sender: FDA-Public Use
  Company Number: US-ROCHE-773515

PATIENT
  Sex: Female
  Weight: 54.4 kg

DRUGS (22)
  1. LOMOTIL [Concomitant]
     Dates: start: 20090815, end: 20110521
  2. METHOTREXATE [Suspect]
     Route: 065
     Dates: start: 20080211, end: 20110516
  3. CELEBREX [Concomitant]
     Dates: start: 20051125, end: 20110521
  4. VOLTAREN [Concomitant]
     Dosage: TDD: 1 QD
     Dates: start: 20080716, end: 20110521
  5. TOCILIZUMAB [Suspect]
     Indication: RHEUMATOID ARTHRITIS
     Route: 042
     Dates: start: 20060621
  6. HYDRALAZINE HCL [Concomitant]
     Dosage: DRUG NAME: HYDRALAZINE HYDROCHLORIDE
     Dates: start: 20101111, end: 20110521
  7. LORAZEPAM [Concomitant]
     Dates: start: 20070709, end: 20110521
  8. TOCILIZUMAB [Suspect]
     Dosage: PATIENT PREVIOUSLY ENROLLED IN WA18063 AND RECEIVED PLACEBO.
     Route: 042
     Dates: end: 20110425
  9. METOPROLOL TARTRATE [Concomitant]
     Dates: start: 20051001
  10. SALAGEN [Concomitant]
     Dates: start: 20090422, end: 20110521
  11. LEVOTHYROXINE SODIUM [Concomitant]
     Dates: start: 20110418, end: 20110521
  12. NORVASC [Concomitant]
     Dates: start: 20101002
  13. PATANOL [Concomitant]
     Dosage: TOTAL DAILY DOSE: 3 GTTS
     Dates: start: 20061031, end: 20110521
  14. AMARYL [Concomitant]
     Dates: start: 20110413, end: 20110504
  15. FOLIC ACID [Concomitant]
     Dates: start: 20100305, end: 20110520
  16. MUPIROCIN [Concomitant]
     Dosage: TDD: 1 APPLIC
     Dates: start: 20090818, end: 20110521
  17. VITAMIN D [Concomitant]
     Dates: start: 20110422, end: 20110521
  18. VICODIN [Concomitant]
     Dates: start: 20110426, end: 20110521
  19. ZESTRIL [Concomitant]
     Dates: start: 20101002, end: 20110521
  20. SIMVASTATIN [Concomitant]
     Dates: start: 20110204, end: 20110521
  21. ZANTAC [Concomitant]
     Dates: start: 20110418, end: 20110521
  22. PRILOSEC [Concomitant]
     Dates: start: 20110124, end: 20110521

REACTIONS (3)
  - VOMITING [None]
  - PANCREATIC CARCINOMA METASTATIC [None]
  - DEHYDRATION [None]
